FAERS Safety Report 23508086 (Version 1)
Quarter: 2024Q1

REPORT INFORMATION
  Report Type: Spontaneous
  Country: US (occurrence: US)
  Receive Date: 20240209
  Receipt Date: 20240209
  Transmission Date: 20240410
  Serious: No
  Sender: FDA-Public Use
  Company Number: US-ABBVIE-5621527

PATIENT
  Sex: Male

DRUGS (2)
  1. HUMIRA [Suspect]
     Active Substance: ADALIMUMAB
     Indication: Rheumatoid arthritis
     Dosage: SKIPPED / MISSED DOSES
     Route: 058
  2. COVID19 vaccine [Concomitant]
     Indication: COVID-19 immunisation

REACTIONS (1)
  - Endodontic procedure [Unknown]
